FAERS Safety Report 20866338 (Version 2)
Quarter: 2022Q2

REPORT INFORMATION
  Report Type: Spontaneous
  Country: US (occurrence: US)
  Receive Date: 20220524
  Receipt Date: 20220628
  Transmission Date: 20220720
  Serious: No
  Sender: FDA-Public Use
  Company Number: US-BRISTOL-MYERS SQUIBB COMPANY-2022-030758

PATIENT
  Age: 65 Year
  Sex: Female

DRUGS (14)
  1. REVLIMID [Suspect]
     Active Substance: LENALIDOMIDE
     Indication: Plasma cell myeloma
     Dosage: DAILY
     Route: 048
     Dates: start: 202202
  2. REVLIMID [Suspect]
     Active Substance: LENALIDOMIDE
     Route: 048
     Dates: start: 20220404
  3. REVLIMID [Suspect]
     Active Substance: LENALIDOMIDE
     Dosage: FREQUENCY: FOR 28 DAYS , NO BREAKS
     Route: 048
     Dates: start: 20220428
  4. REVLIMID [Suspect]
     Active Substance: LENALIDOMIDE
     Dosage: FREQUENCY: FOR 28 DAYS , NO BREAKS
     Route: 048
     Dates: start: 20220519
  5. ASPIRIN [Concomitant]
     Active Substance: ASPIRIN
     Indication: Product used for unknown indication
     Dosage: 1TABLET ONCE A DAY FOR 30DAYS?CHEWABLE 9(ADULT ASPIRIN)
     Route: 048
     Dates: start: 20210505
  6. VITAMIN D3 [Concomitant]
     Active Substance: CHOLECALCIFEROL
     Indication: Product used for unknown indication
     Dosage: 5000 IU BY VITAL NUTRIENTS(CNCA)
     Route: 048
     Dates: start: 20210309
  7. VITAMIN B12 [Concomitant]
     Active Substance: CYANOCOBALAMIN
     Indication: Product used for unknown indication
     Dosage: 5000 IU BY VITAL NUTRIENTS(CNCA)
     Route: 048
     Dates: start: 20210309
  8. VITAMINS NOS [Concomitant]
     Active Substance: VITAMINS
     Indication: Product used for unknown indication
     Route: 065
  9. MONTELUKAST [Concomitant]
     Active Substance: MONTELUKAST SODIUM
     Indication: Product used for unknown indication
     Dosage: 30DAYS
     Route: 048
     Dates: start: 20211013
  10. LEVOTHYROXINE [Concomitant]
     Active Substance: LEVOTHYROXINE
     Indication: Product used for unknown indication
     Dosage: TAKE ON EMPTY STOMACH
     Route: 048
     Dates: start: 20211013
  11. DEXAMETHASONE [Concomitant]
     Active Substance: DEXAMETHASONE
     Indication: Product used for unknown indication
     Dosage: 10 TABLET ORALLY ONCE DAILY A WEEK FOR 28 DAYS?TAKE EVERY WEDNESDAY
     Route: 048
     Dates: start: 20210714
  12. CROMOLYN [Concomitant]
     Active Substance: CROMOLYN
     Indication: Product used for unknown indication
     Dosage: ONCE A DAY FOR 30 DAYS, ONE PUFF TO EACH NOSTRIL DAILY
     Route: 045
     Dates: start: 20210519
  13. CALCIUM [Concomitant]
     Active Substance: CALCIUM
     Indication: Product used for unknown indication
     Dosage: 3CAPSULE
     Route: 065
     Dates: start: 20210518
  14. ACYCLOVIR [Concomitant]
     Active Substance: ACYCLOVIR
     Indication: Product used for unknown indication
     Dosage: 1TABLET ORALLY 2 TIMES A DAY FOR 30DAYS
     Route: 048
     Dates: start: 20210823

REACTIONS (2)
  - Muscle spasms [Unknown]
  - Off label use [Unknown]
